FAERS Safety Report 14146620 (Version 1)
Quarter: 2017Q4

REPORT INFORMATION
  Report Type: Spontaneous
  Country: US (occurrence: US)
  Receive Date: 20171031
  Receipt Date: 20171031
  Transmission Date: 20180321
  Serious: No
  Sender: FDA-Public Use
  Company Number: US-BAUSCH-BL-2016-032109

PATIENT
  Age: 73 Year
  Sex: Male

DRUGS (3)
  1. BEPREVE [Suspect]
     Active Substance: BEPOTASTINE BESILATE
     Indication: EYE PRURITUS
  2. BEPREVE [Suspect]
     Active Substance: BEPOTASTINE BESILATE
     Indication: LACRIMATION INCREASED
     Route: 047
  3. BEPREVE [Suspect]
     Active Substance: BEPOTASTINE BESILATE
     Indication: OCULAR HYPERAEMIA

REACTIONS (2)
  - Eye pain [Recovered/Resolved]
  - Eye irritation [Recovered/Resolved]

NARRATIVE: CASE EVENT DATE: 201612
